FAERS Safety Report 8613549-2 (Version None)
Quarter: 2012Q3

REPORT INFORMATION
  Report Type: 
  Country: None (occurrence: None)
  Receive Date: 20120823
  Receipt Date: 20120808
  Transmission Date: 20120928
  Serious: Yes (Hospitalization)
  Sender: FDA-Public Use
  Company Number: US-009507513-1208USA006056

PATIENT

DRUGS (13)
  1. CYCLOSPORINE [Interacting]
  2. SIROLIMUS [Interacting]
  3. NOXAFIL [Suspect]
     Indication: ZYGOMYCOSIS
     Dosage: 100 MG, TID
     Route: 050
  4. SUCRALFATE [Interacting]
     Dosage: UNK
     Route: 048
  5. NOXAFIL [Interacting]
     Dosage: 800 MG, Q6H
     Route: 048
  6. SUCRALFATE [Interacting]
     Dosage: UNK
  7. NOXAFIL [Interacting]
     Dosage: 600 MG, Q6H
     Route: 050
  8. FAMOTIDINE [Interacting]
     Dosage: UNK
  9. PANTOPRAZOLE [Interacting]
     Dosage: UNK
     Route: 042
  10. PHENYTOIN [Interacting]
     Indication: CONVULSION PROPHYLAXIS
     Dosage: UNK
  11. NOXAFIL [Interacting]
     Dosage: 400 MG, Q4H
     Route: 050
  12. MICAFUNGIN [Concomitant]
  13. NIFEDIPINE [Interacting]

REACTIONS (5)
  - OVERDOSE [None]
  - NAUSEA [None]
  - DRUG INTERACTION [None]
  - VOMITING [None]
  - MALABSORPTION [None]
